FAERS Safety Report 14448308 (Version 1)
Quarter: 2018Q1

REPORT INFORMATION
  Report Type: Spontaneous
  Country: TR (occurrence: TR)
  Receive Date: 20180126
  Receipt Date: 20180126
  Transmission Date: 20180509
  Serious: Yes (Other)
  Sender: FDA-Public Use
  Company Number: TR-FRESENIUS KABI-FK201801037

PATIENT
  Age: 11 Year
  Sex: Male

DRUGS (1)
  1. LEVETIRACETAM (MANUFACTURER UNKNOWN) [Suspect]
     Active Substance: LEVETIRACETAM
     Indication: SEIZURE
     Route: 065

REACTIONS (1)
  - Toxic epidermal necrolysis [Recovering/Resolving]
